FAERS Safety Report 6309615-7 (Version None)
Quarter: 2009Q3

REPORT INFORMATION
  Report Type: 
  Country: None (occurrence: None)
  Receive Date: 20090814
  Receipt Date: 20090731
  Transmission Date: 20100115
  Serious: Yes (Hospitalization)
  Sender: FDA-Public Use
  Company Number: US-JNJFOC-20090800116

PATIENT
  Sex: Female
  Weight: 53.07 kg

DRUGS (4)
  1. ULTRAM [Suspect]
     Dosage: 2X 50 MG, EVERY 4-6 HOURS
     Route: 048
  2. ULTRAM [Suspect]
     Dosage: 2X 50 MG, EVERY 4-6 HOURS
     Route: 048
  3. ULTRAM [Suspect]
     Indication: OSTEOPOROSIS
     Dosage: 2X 50 MG, EVERY 4-6 HOURS
     Route: 048
  4. UNSPECIFIED TRAMADOL [Suspect]
     Indication: OSTEOPOROSIS
     Dosage: 2X 50 MG, EVERY 4-6 HOURS
     Route: 048

REACTIONS (4)
  - ABDOMINAL DISCOMFORT [None]
  - INADEQUATE ANALGESIA [None]
  - INSOMNIA [None]
  - PATHOLOGICAL FRACTURE [None]
